FAERS Safety Report 8599473-2 (Version None)
Quarter: 2012Q3

REPORT INFORMATION
  Report Type: 
  Country: None (occurrence: None)
  Receive Date: 20120802
  Receipt Date: 20120723
  Transmission Date: 20120928
  Serious: Yes (Death, Hospitalization)
  Sender: FDA-Public Use
  Company Number: 2012S1000755

PATIENT
  Age: 67 Year
  Sex: Male
  Weight: 80 kg

DRUGS (9)
  1. SHAKUYAKUKANZOTO (SHAKUYAKUKANZOTO) [Suspect]
     Dosage: 5 GM; BID; PO
     Route: 048
     Dates: end: 20120525
  2. MUCODYNE (CARBOCISTEINE) [Suspect]
     Dosage: 500 MG; TID; PO
     Route: 048
     Dates: end: 20120525
  3. NORVASC [Suspect]
     Dosage: 5 MG; 1X; PO
     Route: 048
     Dates: start: 20060801
  4. FAMOTIDINE [Suspect]
     Dosage: 20 MG; BID; PO
     Route: 048
     Dates: start: 20060801
  5. DISOPYRAMIDE [Suspect]
     Dosage: 150 MG; 1X';PO
     Route: 048
     Dates: start: 20060801
  6. LIVALO [Suspect]
     Indication: DYSLIPIDAEMIA
  7. TICLOPIDINE HYDROCHLORIDE [Suspect]
     Dosage: 100 MG; BID; PO
     Route: 048
     Dates: start: 20060801
  8. ALLEGRA [Suspect]
     Dosage: 60 MG; BID; PO
     Route: 048
     Dates: end: 20120525
  9. ASPIRIN [Concomitant]

REACTIONS (3)
  - CEREBRAL HAEMORRHAGE [None]
  - PYREXIA [None]
  - DRUG-INDUCED LIVER INJURY [None]
